FAERS Safety Report 7206343-0 (Version None)
Quarter: 2011Q1

REPORT INFORMATION
  Report Type: 
  Country: None (occurrence: None)
  Receive Date: 20110103
  Receipt Date: 20110103
  Transmission Date: 20110831
  Serious: Yes (Hospitalization)
  Sender: FDA-Public Use
  Company Number: PHHO2007DE19472

PATIENT
  Sex: Female
  Weight: 57 kg

DRUGS (6)
  1. AFINITOR [Suspect]
     Indication: CARCINOID TUMOUR
     Dosage: 10 MG, QD
     Route: 048
     Dates: start: 20071010, end: 20071120
  2. METOPROLOL [Concomitant]
  3. FERRO ^SANOL^ [Concomitant]
  4. SANDOSTATIN LAR [Suspect]
     Indication: CARCINOID TUMOUR
     Dosage: 20 MG/DAY
     Route: 048
     Dates: start: 20071010, end: 20071108
  5. CARMEN [Concomitant]
  6. VITAMIN B-12 [Concomitant]

REACTIONS (3)
  - ILEUS [None]
  - VOMITING [None]
  - NAUSEA [None]
